FAERS Safety Report 24332983 (Version 1)
Quarter: 2024Q3

REPORT INFORMATION
  Report Type: Other
  Country: US (occurrence: US)
  Receive Date: 20240918
  Receipt Date: 20240918
  Transmission Date: 20241016
  Serious: Yes (Other)
  Sender: PL DEVELOPMENTS
  Company Number: US-P+L Developments of Newyork Corporation-2161755

PATIENT
  Age: 55 Year
  Sex: Female

DRUGS (4)
  1. OMEPRAZOLE MAGNESIUM [Suspect]
     Active Substance: OMEPRAZOLE MAGNESIUM
     Indication: Product used for unknown indication
  2. PEMBROLIZUMAB [Suspect]
     Active Substance: PEMBROLIZUMAB
  3. ASPIRIN [Suspect]
     Active Substance: ASPIRIN
  4. LENVIMA [Suspect]
     Active Substance: LENVATINIB

REACTIONS (3)
  - Renal tubular necrosis [Recovered/Resolved]
  - Focal segmental glomerulosclerosis [Recovered/Resolved]
  - Renal tubular injury [Recovered/Resolved]
